FAERS Safety Report 4291919-3 (Version None)
Quarter: 2004Q1

REPORT INFORMATION
  Report Type: 
  Country: None (occurrence: None)
  Receive Date: 20040210
  Receipt Date: 20040210
  Transmission Date: 20041129
  Serious: No
  Sender: FDA-Public Use
  Company Number: None

PATIENT
  Age: 66 Year
  Sex: Male
  Weight: 164 kg

DRUGS (9)
  1. AVANDIA [Suspect]
     Indication: DIABETES MELLITUS NON-INSULIN-DEPENDENT
     Dosage: 4 MG BID ORAL
     Route: 048
     Dates: start: 20030623, end: 20031230
  2. CLOTRIMAZOLE [Concomitant]
  3. DILTIAZEM [Concomitant]
  4. FOSINOPRIL SODIUM [Concomitant]
  5. FUROSEMIDE [Concomitant]
  6. GABAPENTIN [Concomitant]
  7. GLIPIZIDE [Concomitant]
  8. NPH INSULIN [Concomitant]
  9. TRAMADOL HCL [Concomitant]

REACTIONS (2)
  - OEDEMA [None]
  - WEIGHT INCREASED [None]
